FAERS Safety Report 16226418 (Version 1)
Quarter: 2019Q2

REPORT INFORMATION
  Report Type: Spontaneous
  Country: SG (occurrence: SG)
  Receive Date: 20190423
  Receipt Date: 20190423
  Transmission Date: 20190711
  Serious: Yes (Hospitalization, Other)
  Sender: FDA-Public Use
  Company Number: SG-EDENBRIDGE PHARMACEUTICALS, LLC-SG-2019EDE000049

PATIENT
  Age: 65 Year
  Sex: Female

DRUGS (7)
  1. PREDNISOLONE SODIUM PHOSPHATE. [Suspect]
     Active Substance: PREDNISOLONE SODIUM PHOSPHATE
     Dosage: 5 MG, THRICE PER WEEK (FURTHER REDUCED)
     Route: 048
     Dates: start: 201702, end: 2017
  2. PREDNISOLONE SODIUM PHOSPHATE. [Suspect]
     Active Substance: PREDNISOLONE SODIUM PHOSPHATE
     Dosage: 60 MG, QD (INCREASED AFTER MCD RELAPSE)
     Route: 048
     Dates: start: 201703, end: 2017
  3. PREDNISOLONE SODIUM PHOSPHATE. [Suspect]
     Active Substance: PREDNISOLONE SODIUM PHOSPHATE
     Dosage: 10 MG, QD (FURTHER TAPERED)
     Route: 048
     Dates: start: 20170124, end: 2017
  4. PREDNISOLONE SODIUM PHOSPHATE. [Suspect]
     Active Substance: PREDNISOLONE SODIUM PHOSPHATE
     Dosage: 40 MG, QD (TAPERED)
     Route: 048
     Dates: start: 20160822
  5. PREDNISOLONE SODIUM PHOSPHATE. [Suspect]
     Active Substance: PREDNISOLONE SODIUM PHOSPHATE
     Indication: GLOMERULONEPHRITIS MINIMAL LESION
     Dosage: 60 MG, QD (1MG/KG IDEAL BODY WEIGHT/DAY)
     Route: 048
     Dates: start: 20160719, end: 20160818
  6. PREDNISOLONE SODIUM PHOSPHATE. [Suspect]
     Active Substance: PREDNISOLONE SODIUM PHOSPHATE
     Dosage: 10 MG, EVERY 1.5 WEEKS (EVENTUALLY STOPPED)
     Route: 048
     Dates: start: 2017, end: 201705
  7. CYCLOSPORIN [Concomitant]
     Active Substance: CYCLOSPORINE
     Indication: GLOMERULONEPHRITIS MINIMAL LESION
     Dosage: 100 MG, BID [4MG/KG PER DAY IN DIVIDED DOSES]

REACTIONS (2)
  - Cushing^s syndrome [Unknown]
  - Substance-induced psychotic disorder [Recovered/Resolved]

NARRATIVE: CASE EVENT DATE: 20160822
